FAERS Safety Report 7284506-6 (Version None)
Quarter: 2011Q1

REPORT INFORMATION
  Report Type: 
  Country: None (occurrence: None)
  Receive Date: 20110209
  Receipt Date: 20110130
  Transmission Date: 20110831
  Serious: Yes (Hospitalization, Other)
  Sender: FDA-Public Use
  Company Number: US-ALLERGAN-1101564US

PATIENT
  Age: 7 Year
  Sex: Female

DRUGS (2)
  1. BACLOFEN [Concomitant]
  2. BOTOXA? [Suspect]
     Indication: MUSCLE SPASTICITY
     Dosage: UNK
     Route: 030

REACTIONS (1)
  - ASCITES [None]
